FAERS Safety Report 10207991 (Version 1)
Quarter: 2014Q2

REPORT INFORMATION
  Report Type: Spontaneous
  Country: FR (occurrence: FR)
  Receive Date: 20140530
  Receipt Date: 20140530
  Transmission Date: 20141212
  Serious: Yes (Hospitalization)
  Sender: FDA-Public Use
  Company Number: FR-TEVA-483607ISR

PATIENT
  Age: 64 Year
  Sex: Male

DRUGS (11)
  1. TRAMADOL TEVA [Suspect]
     Indication: PAIN
     Dosage: 200 MILLIGRAM DAILY;
     Route: 048
     Dates: start: 20131004, end: 20131005
  2. BACTRIM FORTE [Suspect]
     Indication: OSTEITIS
     Dosage: 3 DOSAGE FORMS DAILY;
     Route: 048
     Dates: start: 20131004, end: 20131005
  3. TAVANIC 500 MG [Suspect]
     Indication: OSTEITIS
     Dosage: 1 GRAM DAILY;
     Route: 048
  4. COAPROVEL 300/12.5 MG [Suspect]
     Indication: HYPERTENSION
     Dosage: 1 DOSAGE FORMS DAILY;
     Route: 048
  5. JANUMET [Concomitant]
  6. AMAREL [Concomitant]
  7. LANTUS [Concomitant]
  8. TEMERIT [Concomitant]
  9. CRESTOR [Concomitant]
  10. PLAVIX [Concomitant]
  11. DOLIPRANE [Concomitant]

REACTIONS (6)
  - Convulsion [Recovered/Resolved]
  - Malaise [Unknown]
  - Urinary incontinence [Unknown]
  - Breath sounds abnormal [Recovered/Resolved]
  - Vomiting [Unknown]
  - Renal failure acute [Unknown]
